FAERS Safety Report 4758313-X (Version None)
Quarter: 2005Q3

REPORT INFORMATION
  Report Type: 
  Country: None (occurrence: None)
  Receive Date: 20050826
  Receipt Date: 20050519
  Transmission Date: 20060218
  Serious: No
  Sender: FDA-Public Use
  Company Number: WAES 0505USA02401

PATIENT
  Age: 68 Year
  Sex: Female

DRUGS (2)
  1. ZETIA [Suspect]
     Indication: BLOOD CHOLESTEROL ABNORMAL
     Dosage: 10 MG/DAILY/PO
     Route: 048
     Dates: start: 20050401, end: 20050517
  2. [THERAPY UNSPECIFIED] [Concomitant]

REACTIONS (1)
  - BLOOD PRESSURE INCREASED [None]
